FAERS Safety Report 4529647-9 (Version None)
Quarter: 2004Q4

REPORT INFORMATION
  Report Type: 
  Country: None (occurrence: None)
  Receive Date: 20041214
  Receipt Date: 20041208
  Transmission Date: 20050328
  Serious: Yes (Other)
  Sender: FDA-Public Use
  Company Number: OMPQ-PR-0412L-1421

PATIENT
  Age: 68 Year
  Sex: Female

DRUGS (4)
  1. OMNIPAQUE 140 [Suspect]
     Indication: ANEURYSM
     Dosage: 24 ML, SINGLE DOSE, I.A.
     Route: 013
  2. HYPAQUE [Concomitant]
     Indication: ANEURYSM
     Dosage: SINGLE DOSE, I.A.
     Route: 013
  3. LITHIUM [Concomitant]
  4. DESIPRAMINE [Concomitant]

REACTIONS (8)
  - AMNESIA [None]
  - ARTERIAL DISORDER [None]
  - BLINDNESS TRANSIENT [None]
  - BRAIN SCAN ABNORMAL [None]
  - CAROTID ARTERY ANEURYSM [None]
  - CONFUSIONAL STATE [None]
  - DISORIENTATION [None]
  - MEMORY IMPAIRMENT [None]
